FAERS Safety Report 7543574-4 (Version None)
Quarter: 2011Q2

REPORT INFORMATION
  Report Type: 
  Country: None (occurrence: None)
  Receive Date: 20110613
  Receipt Date: 20020924
  Transmission Date: 20111010
  Serious: Yes (Hospitalization)
  Sender: FDA-Public Use
  Company Number: PHBS2002JP10272

PATIENT
  Sex: Female
  Weight: 48 kg

DRUGS (2)
  1. DIOVAN [Suspect]
     Indication: ESSENTIAL HYPERTENSION
     Dosage: 80 MG/DAY
     Route: 048
     Dates: start: 20020416, end: 20020416
  2. ADALAT [Suspect]
     Indication: ESSENTIAL HYPERTENSION
     Dosage: 40 MG/DAY
     Route: 048
     Dates: start: 19990906

REACTIONS (2)
  - DECREASED APPETITE [None]
  - DIZZINESS [None]
